FAERS Safety Report 5847354-7 (Version None)
Quarter: 2008Q3

REPORT INFORMATION
  Report Type: 
  Country: None (occurrence: None)
  Receive Date: 20080813
  Receipt Date: 20080805
  Transmission Date: 20090109
  Serious: Yes (Other)
  Sender: FDA-Public Use
  Company Number: 19852

PATIENT
  Age: 47 Year
  Sex: Male

DRUGS (5)
  1. VINCRISTINE [Suspect]
     Indication: NON-HODGKIN'S LYMPHOMA
     Dosage: 2 MG PER _CYCLE
     Dates: start: 20050101, end: 20050801
  2. CAELYX. MFR: NOT SPECIFIED [Suspect]
     Indication: NON-HODGKIN'S LYMPHOMA
     Dosage: 30 MG/M2 PER_CYCLE
     Dates: start: 20050101, end: 20050801
  3. RITUXIMAB [Suspect]
     Indication: NON-HODGKIN'S LYMPHOMA
     Dosage: 375 MG/M2 PER_CYCLE
     Dates: start: 20050101, end: 20050801
  4. CYCLOPHOSPHAMIDE [Suspect]
     Indication: NON-HODGKIN'S LYMPHOMA
     Dosage: 750 MG/M2 PER_CYCLE
     Dates: start: 20050101, end: 20050801
  5. PREDNISONE TAB [Suspect]
     Indication: NON-HODGKIN'S LYMPHOMA
     Dosage: 100 MG PER_CYCLE
     Dates: start: 20050101, end: 20050801

REACTIONS (3)
  - ACUTE MYOCARDIAL INFARCTION [None]
  - DISEASE RECURRENCE [None]
  - HEPATITIS C [None]
